FAERS Safety Report 15367170 (Version 1)
Quarter: 2018Q3

REPORT INFORMATION
  Report Type: Spontaneous
  Country: US (occurrence: US)
  Receive Date: 20180903
  Receipt Date: 20180903
  Transmission Date: 20181010
  Serious: Yes (Disabling)
  Sender: FDA-Public Use
  Company Number: None

PATIENT
  Age: 34 Year
  Sex: Female
  Weight: 50.85 kg

DRUGS (1)
  1. METRONIDAZOLE VAGINAL GEL .75% [Suspect]
     Active Substance: METRONIDAZOLE
     Indication: BACTERIAL VAGINOSIS
     Dosage: ?          QUANTITY:1 SUPPOSITORY(IES);?
     Route: 067
     Dates: start: 20180829, end: 20180901

REACTIONS (13)
  - Insomnia [None]
  - Nausea [None]
  - Feeling of body temperature change [None]
  - Body temperature increased [None]
  - Pain [None]
  - Hypophagia [None]
  - Hypoaesthesia [None]
  - Muscle spasms [None]
  - Decreased appetite [None]
  - Paraesthesia [None]
  - Fatigue [None]
  - Temperature regulation disorder [None]
  - Headache [None]

NARRATIVE: CASE EVENT DATE: 20180901
